FAERS Safety Report 13616370 (Version 1)
Quarter: 2017Q2

REPORT INFORMATION
  Report Type: Spontaneous
  Country: US (occurrence: US)
  Receive Date: 20170606
  Receipt Date: 20170606
  Transmission Date: 20170830
  Serious: Yes (Hospitalization, Disabling, Other)
  Sender: FDA-Public Use
  Company Number: None

PATIENT
  Age: 35 Year
  Sex: Female
  Weight: 75.6 kg

DRUGS (6)
  1. DEPO-PROVERA [Suspect]
     Active Substance: MEDROXYPROGESTERONE ACETATE
     Indication: CONTRACEPTION
     Dosage: ?          OTHER FREQUENCY:ONE SHOT TAKEN;?
     Route: 030
  2. NORCO [Concomitant]
     Active Substance: ACETAMINOPHEN\HYDROCODONE BITARTRATE
  3. FLUXOLETINE (PROZAC) [Concomitant]
  4. METHOCARBAMOL. [Concomitant]
     Active Substance: METHOCARBAMOL
  5. BENTYL [Concomitant]
     Active Substance: DICYCLOMINE HYDROCHLORIDE
  6. ZOFRAN [Concomitant]
     Active Substance: ONDANSETRON HYDROCHLORIDE

REACTIONS (5)
  - Uterine leiomyoma [None]
  - Ovarian cyst [None]
  - Headache [None]
  - Amenorrhoea [None]
  - Infertility [None]

NARRATIVE: CASE EVENT DATE: 20170518
